FAERS Safety Report 25934614 (Version 3)
Quarter: 2025Q4

REPORT INFORMATION
  Report Type: Report from Study
  Country: US (occurrence: US)
  Receive Date: 20251017
  Receipt Date: 20251216
  Transmission Date: 20260117
  Serious: No
  Sender: MALLINCKRODT
  Company Number: US-MALLINCKRODT-MNK202505987

PATIENT
  Age: 60 Year
  Sex: Female

DRUGS (5)
  1. CORTICOTROPIN [Suspect]
     Active Substance: CORTICOTROPIN
     Indication: Scleritis
     Dosage: 80 UNITS
     Route: 058
  2. CORTICOTROPIN [Suspect]
     Active Substance: CORTICOTROPIN
     Indication: Corneal disorder
  3. HADLIMA [ADALIMUMAB BWWD] [Concomitant]
     Dosage: UNKNOWN
  4. REMICADE [Concomitant]
     Active Substance: INFLIXIMAB
     Dosage: UNKNOWN
  5. METHOTREXATE [Concomitant]
     Active Substance: METHOTREXATE
     Dosage: UNKNOWN

REACTIONS (7)
  - Pollakiuria [Unknown]
  - Renal cyst [Unknown]
  - Hepatomegaly [Unknown]
  - Urinary incontinence [Unknown]
  - Dry mouth [Unknown]
  - Insomnia [Unknown]
  - Fatigue [Unknown]
